FAERS Safety Report 6829633-X (Version None)
Quarter: 2010Q3

REPORT INFORMATION
  Report Type: 
  Country: None (occurrence: None)
  Receive Date: 20100709
  Receipt Date: 20070503
  Transmission Date: 20110219
  Serious: Yes (Other)
  Sender: FDA-Public Use
  Company Number: US-PFIZER INC-2007007741

PATIENT
  Sex: Male
  Weight: 68 kg

DRUGS (17)
  1. CHANTIX [Suspect]
     Indication: SMOKING CESSATION THERAPY
     Dates: start: 20061101, end: 20070123
  2. PROGRAF [Interacting]
  3. LEXAPRO [Concomitant]
  4. TRICOR [Concomitant]
  5. OMACOR [Concomitant]
  6. FOSAMAX [Concomitant]
  7. PROTONIX [Concomitant]
  8. AMBIEN [Concomitant]
  9. MIRAPEX [Concomitant]
  10. STARLIX [Concomitant]
  11. PHOSPHORUS [Concomitant]
  12. MAGNESIUM [Concomitant]
  13. CALCIUM CARBONATE [Concomitant]
  14. VITAMIN D [Concomitant]
  15. PREDNISONE [Concomitant]
  16. RAPAMUNE [Concomitant]
     Dates: end: 20060101
  17. AVAPRO [Concomitant]

REACTIONS (2)
  - DRUG INTERACTION [None]
  - HYPERTENSION [None]
